FAERS Safety Report 17673562 (Version 1)
Quarter: 2020Q2

REPORT INFORMATION
  Report Type: Spontaneous
  Country: ES (occurrence: ES)
  Receive Date: 20200416
  Receipt Date: 20200416
  Transmission Date: 20200714
  Serious: Yes (Hospitalization, Other)
  Sender: FDA-Public Use
  Company Number: ES-AUROBINDO-AUR-APL-2020-018539

PATIENT
  Age: 78 Year
  Sex: Female

DRUGS (1)
  1. AMOXICILLIN / CLAVULANIC ACID FILM-COATED TABLETS 875/125MG [Suspect]
     Active Substance: AMOXICILLIN\CLAVULANIC ACID
     Indication: RESPIRATORY TRACT INFECTION
     Dosage: 1 DOSAGE FORM, 3 TIMES A DAY (1-1-1)
     Route: 048
     Dates: start: 20190121, end: 20190127

REACTIONS (2)
  - Acute kidney injury [Recovered/Resolved]
  - Diarrhoea [Recovered/Resolved]

NARRATIVE: CASE EVENT DATE: 20190124
